FAERS Safety Report 16330510 (Version 6)
Quarter: 2020Q2

REPORT INFORMATION
  Report Type: Report from Study
  Country: GB (occurrence: GB)
  Receive Date: 20190520
  Receipt Date: 20200428
  Transmission Date: 20200713
  Serious: Yes (Life-Threatening, Hospitalization, Other)
  Sender: FDA-Public Use
  Company Number: GB-CELLTRION INC.-2018GB024535

PATIENT

DRUGS (23)
  1. TRUXIMA [Suspect]
     Active Substance: RITUXIMAB-ABBS
     Dosage: 800 MG 3 WEEKLY
     Route: 042
     Dates: start: 20180807
  2. TRUXIMA [Suspect]
     Active Substance: RITUXIMAB-ABBS
     Indication: DIFFUSE LARGE B-CELL LYMPHOMA
     Dosage: 800 MG 3 WEEKLY
     Route: 042
     Dates: start: 20180511, end: 20180511
  3. TRUXIMA [Suspect]
     Active Substance: RITUXIMAB-ABBS
     Dosage: 800 MG 3 WEEKLY
     Route: 042
     Dates: start: 20180717
  4. CAPASAL [Concomitant]
     Dosage: UNK
  5. EPIMAX [Concomitant]
     Active Substance: MINERAL OIL\PARAFFIN
     Dosage: OATMEAL CREAM
  6. TAMSULOSIN [Concomitant]
     Active Substance: TAMSULOSIN
     Dosage: 400 MCG
  7. SIMVASTATIN. [Concomitant]
     Active Substance: SIMVASTATIN
     Dosage: 40 MG
  8. CO AMILOFRUSE [Concomitant]
     Active Substance: AMILORIDE HYDROCHLORIDE\FUROSEMIDE
     Dosage: 5MG/40MG
  9. BUTEC [Concomitant]
     Active Substance: BUPRENORPHINE
     Dosage: 15MCG/HR TRANSDERMAL PATCH
     Route: 062
  10. LOPERAMIDE [Concomitant]
     Active Substance: LOPERAMIDE
     Dosage: UNK
  11. CLINITAS HYDRATE [Concomitant]
     Dosage: 0.2% EYE GEL
  12. IRBESARTAN. [Concomitant]
     Active Substance: IRBESARTAN
     Dosage: 150 MG
  13. LANSOPRAZOLE. [Concomitant]
     Active Substance: LANSOPRAZOLE
     Dosage: 30 MG
  14. CODEINE [Concomitant]
     Active Substance: CODEINE
     Dosage: 15 MG
  15. TRUXIMA [Suspect]
     Active Substance: RITUXIMAB-ABBS
     Dosage: 800 MG 3 WEEKLY
     Route: 042
     Dates: start: 20180626
  16. TRUXIMA [Suspect]
     Active Substance: RITUXIMAB-ABBS
     Dosage: 800 MG 3 WEEKLY
     Route: 042
     Dates: start: 20180511, end: 20180511
  17. TRUXIMA [Suspect]
     Active Substance: RITUXIMAB-ABBS
     Dosage: 800 MG 3 WEEKLY
     Route: 042
     Dates: start: 20180605
  18. TRUXIMA [Suspect]
     Active Substance: RITUXIMAB-ABBS
     Dosage: 800 MG 3 WEEKLY
     Route: 042
     Dates: start: 20180828, end: 20180828
  19. TRUXIMA [Suspect]
     Active Substance: RITUXIMAB-ABBS
     Dosage: 800 MG 3 WEEKLY
     Route: 042
     Dates: start: 20180828, end: 20180828
  20. RIVAROXABAN [Concomitant]
     Active Substance: RIVAROXABAN
     Dosage: 20 MG
  21. MESALAZINE [Concomitant]
     Active Substance: MESALAMINE
     Dosage: 1.2 G
  22. BUDESONIDE. [Concomitant]
     Active Substance: BUDESONIDE
     Dosage: 2 MG FOAM ENEMA
  23. URSODEOXYCHOLIC AC [Concomitant]
     Dosage: 150 MG

REACTIONS (5)
  - Eczema [Recovering/Resolving]
  - Infusion related reaction [Recovered/Resolved]
  - Cellulitis [Recovered/Resolved]
  - Squamous cell carcinoma [Recovered/Resolved]
  - Underdose [Unknown]

NARRATIVE: CASE EVENT DATE: 20180511
